FAERS Safety Report 9902118 (Version 2)
Quarter: 2014Q3

REPORT INFORMATION
  Report Type: Spontaneous
  Country: CH (occurrence: CH)
  Receive Date: 20140217
  Receipt Date: 20140814
  Transmission Date: 20150326
  Serious: Yes (Hospitalization, Other)
  Sender: FDA-Public Use
  Company Number: CH-UCBSA-112591

PATIENT
  Age: 59 Year
  Sex: Female

DRUGS (10)
  1. RIVOTRIL [Concomitant]
     Active Substance: CLONAZEPAM
     Dosage: 0.5 MG, 3X/DAY (TID)
  2. KEPPRA [Suspect]
     Active Substance: LEVETIRACETAM
     Indication: CONVULSION
     Dosage: 500 MG, 2X/DAY (BID)
     Route: 042
     Dates: start: 20140103, end: 20140131
  3. TRILEPTAL [Suspect]
     Active Substance: OXCARBAZEPINE
     Dosage: 400 MG, 2X/DAY (BID)
     Dates: start: 20140201, end: 20140210
  4. ANXIOLIT [Suspect]
     Active Substance: OXAZEPAM
     Dosage: 7.5 MG, 2X/DAY (BID)
     Route: 048
     Dates: end: 20140110
  5. DEXAMETHASON [Concomitant]
     Active Substance: DEXAMETHASONE
     Dosage: 1 MG, ONCE DAILY (QD)
     Route: 048
     Dates: end: 20140129
  6. SEVREDOL [Suspect]
     Active Substance: MORPHINE
     Dosage: 5 MG, 6X/DAY
     Route: 048
     Dates: end: 20140108
  7. INSULATARD HM [Concomitant]
     Dosage: 10 IU, ONCE DAILY (QD)
     Route: 058
  8. DAFALGAN [Suspect]
     Active Substance: ACETAMINOPHEN
     Dosage: 1000 MG, 4X/DAY (QID)
     Route: 048
     Dates: end: 20140108
  9. ANXIOLIT [Suspect]
     Active Substance: OXAZEPAM
     Dosage: 7.5 MG, ONCE DAILY (QD)
     Route: 048
  10. DEXAMETHASON [Concomitant]
     Active Substance: DEXAMETHASONE
     Dosage: 4 MG, 4X/DAY (QID)
     Route: 048
     Dates: start: 201312

REACTIONS (2)
  - Pancytopenia [Recovered/Resolved]
  - Thrombocytopenia [Recovered/Resolved]

NARRATIVE: CASE EVENT DATE: 20140105
